FAERS Safety Report 5278804-5 (Version None)
Quarter: 2007Q1

REPORT INFORMATION
  Report Type: 
  Country: None (occurrence: None)
  Receive Date: 20070322
  Receipt Date: 20070312
  Transmission Date: 20070707
  Serious: Yes (Hospitalization)
  Sender: FDA-Public Use
  Company Number: CERZ-11558

PATIENT
  Age: 38 Year
  Sex: Female
  Weight: 71.2 kg

DRUGS (1)
  1. CEREZYME [Suspect]
     Indication: GAUCHER'S DISEASE
     Dosage: 1600 UNITS IV
     Route: 042
     Dates: start: 19970905

REACTIONS (2)
  - DEHYDRATION [None]
  - GASTROENTERITIS [None]
